FAERS Safety Report 19474731 (Version 4)
Quarter: 2024Q2

REPORT INFORMATION
  Report Type: Report from Study
  Country: US (occurrence: US)
  Receive Date: 20210629
  Receipt Date: 20240607
  Transmission Date: 20240716
  Serious: Yes (Other)
  Sender: FDA-Public Use
  Company Number: US-INCYTE CORPORATION-2021IN004501

PATIENT

DRUGS (9)
  1. JAKAFI [Suspect]
     Active Substance: RUXOLITINIB
     Indication: Myelofibrosis
     Dosage: 20 MILLIGRAM, BID
     Route: 048
     Dates: start: 20210506
  2. JAKAFI [Suspect]
     Active Substance: RUXOLITINIB
     Dosage: 15 MILLIGRAM, BID
     Route: 048
     Dates: start: 202105
  3. JAKAFI [Suspect]
     Active Substance: RUXOLITINIB
     Dosage: 15 MILLIGRAM, BID
     Route: 048
     Dates: start: 20210605, end: 20210825
  4. JAKAFI [Suspect]
     Active Substance: RUXOLITINIB
     Dosage: 15 MILLIGRAM, BID
     Route: 048
     Dates: start: 20210506
  5. JAKAFI [Suspect]
     Active Substance: RUXOLITINIB
     Dosage: 10 MILLIGRAM, BID
     Route: 048
     Dates: start: 202109
  6. JAKAFI [Suspect]
     Active Substance: RUXOLITINIB
     Dosage: 15 MILLIGRAM, BID
     Route: 065
  7. JAKAFI [Suspect]
     Active Substance: RUXOLITINIB
     Dosage: 20 MILLIGRAM, BID
     Route: 065
  8. NAVITOCLAX [Concomitant]
     Active Substance: NAVITOCLAX
     Indication: Product used for unknown indication
     Route: 065
  9. PROCRIT [Concomitant]
     Active Substance: ERYTHROPOIETIN
     Indication: Red blood cell count decreased
     Route: 065

REACTIONS (12)
  - Anaemia [Unknown]
  - Abdominal distension [Not Recovered/Not Resolved]
  - Fatigue [Unknown]
  - Pain [Unknown]
  - Abdominal discomfort [Unknown]
  - Full blood count abnormal [Unknown]
  - Alopecia [Unknown]
  - Bone pain [Unknown]
  - Nausea [Not Recovered/Not Resolved]
  - Dizziness [Not Recovered/Not Resolved]
  - Diarrhoea [Unknown]
  - Constipation [Unknown]
